FAERS Safety Report 19849319 (Version 2)
Quarter: 2021Q4

REPORT INFORMATION
  Report Type: Report from Study
  Country: US (occurrence: US)
  Receive Date: 20210917
  Receipt Date: 20211119
  Transmission Date: 20220303
  Serious: Yes (Hospitalization, Other)
  Sender: FDA-Public Use
  Company Number: US-TAKEDA-2021TUS057487

PATIENT
  Sex: Male

DRUGS (3)
  1. LANADELUMAB [Suspect]
     Active Substance: LANADELUMAB
     Indication: Product used for unknown indication
     Dosage: 300 MILLIGRAM, Q2WEEKS
     Route: 050
  2. FIRAZYR [Suspect]
     Active Substance: ICATIBANT ACETATE
     Indication: Product used for unknown indication
     Route: 065
  3. FIRAZYR [Suspect]
     Active Substance: ICATIBANT ACETATE
     Indication: Product used for unknown indication
     Route: 065

REACTIONS (3)
  - Pneumonia fungal [Unknown]
  - Hereditary angioedema [Unknown]
  - Pericardial effusion [Unknown]
